FAERS Safety Report 26095341 (Version 1)
Quarter: 2025Q4

REPORT INFORMATION
  Report Type: Spontaneous
  Country: CN (occurrence: CN)
  Receive Date: 20251127
  Receipt Date: 20251127
  Transmission Date: 20260117
  Serious: Yes (Other)
  Sender: Kenvue
  Company Number: CN-KENVUE-20251108837

PATIENT
  Age: 7 Year
  Weight: 18 kg

DRUGS (6)
  1. CHILDRENS MOTRIN [Suspect]
     Active Substance: IBUPROFEN
     Indication: Pyrexia
     Dosage: 5 MILLILITER, SINGLE
  2. HERBALS [Suspect]
     Active Substance: HERBALS
     Indication: Antipyresis
     Dosage: 10 MILLILITER, THRICE A DAY
  3. HERBALS [Suspect]
     Active Substance: HERBALS
     Indication: Detoxification
  4. HERBALS [Suspect]
     Active Substance: HERBALS
     Indication: Antiviral treatment
  5. HERBALS [Suspect]
     Active Substance: HERBALS
     Indication: Cough
     Dosage: 10 MILLILITER, THRICE A DAY
  6. HERBALS [Suspect]
     Active Substance: HERBALS
     Indication: Productive cough

REACTIONS (4)
  - Ocular hyperaemia [Recovered/Resolved]
  - Swelling of eyelid [Recovered/Resolved]
  - Urticaria [Recovered/Resolved]
  - Pruritus [Recovering/Resolving]
